FAERS Safety Report 21522780 (Version 4)
Quarter: 2022Q4

REPORT INFORMATION
  Report Type: Spontaneous
  Country: US (occurrence: US)
  Receive Date: 20221029
  Receipt Date: 20221216
  Transmission Date: 20230113
  Serious: No
  Sender: FDA-Public Use
  Company Number: US-UNITED THERAPEUTICS-UNT-2022-025686

PATIENT
  Sex: Female
  Weight: 45.805 kg

DRUGS (5)
  1. REMODULIN [Suspect]
     Active Substance: TREPROSTINIL
     Indication: Pulmonary arterial hypertension
     Dosage: UNK, CONTINUING
     Route: 058
     Dates: start: 20220826
  2. REMODULIN [Suspect]
     Active Substance: TREPROSTINIL
     Dosage: 0.178 ?G/KG, (PREFILLED WITH 3ML PER CASSETTE AT PUMP RATE 64 MCL/HOUR) CONTINUING
     Route: 058
     Dates: start: 2022
  3. REMODULIN [Suspect]
     Active Substance: TREPROSTINIL
     Dosage: UNK UNK, CONTINUING
     Route: 058
     Dates: start: 2022
  4. TADALAFIL [Concomitant]
     Active Substance: TADALAFIL
     Indication: Product used for unknown indication
     Dosage: UNK
     Route: 065
  5. AMBRISENTAN [Concomitant]
     Active Substance: AMBRISENTAN
     Indication: Product used for unknown indication
     Dosage: UNK
     Route: 065

REACTIONS (7)
  - Infusion site pain [Unknown]
  - Device failure [Recovered/Resolved]
  - Device failure [Recovered/Resolved]
  - Device malfunction [Unknown]
  - Infusion site swelling [Unknown]
  - Infusion site infection [Unknown]
  - Infusion site erythema [Unknown]

NARRATIVE: CASE EVENT DATE: 20220101
